FAERS Safety Report 15296976 (Version 1)
Quarter: 2018Q3

REPORT INFORMATION
  Report Type: Spontaneous
  Country: FR (occurrence: FR)
  Receive Date: 20180820
  Receipt Date: 20180820
  Transmission Date: 20181010
  Serious: Yes (Other)
  Sender: FDA-Public Use
  Company Number: FR-PFIZER INC-2018324739

PATIENT
  Sex: Male

DRUGS (2)
  1. TAHOR [Suspect]
     Active Substance: ATORVASTATIN CALCIUM
     Indication: CARDIOVASCULAR DISORDER
     Dosage: UNK, UNKNOWN
     Route: 065
  2. TRULICITY [Suspect]
     Active Substance: DULAGLUTIDE
     Dosage: 1.5 MG, UNK
     Route: 065

REACTIONS (12)
  - Asthenia [Unknown]
  - Abdominal distension [Unknown]
  - Impaired gastric emptying [Unknown]
  - Muscular weakness [Unknown]
  - Constipation [Unknown]
  - Decreased appetite [Unknown]
  - Feeding disorder [Unknown]
  - Cognitive disorder [Unknown]
  - Tendonitis [Unknown]
  - Gastrooesophageal reflux disease [Unknown]
  - Disturbance in attention [Unknown]
  - Eructation [Unknown]
